FAERS Safety Report 4745856-8 (Version None)
Quarter: 2005Q3

REPORT INFORMATION
  Report Type: 
  Country: None (occurrence: None)
  Receive Date: 20050816
  Receipt Date: 20050808
  Transmission Date: 20060218
  Serious: Yes (Hospitalization)
  Sender: FDA-Public Use
  Company Number: DE-ABBOTT-05P-062-0307931-00

PATIENT
  Sex: Male
  Weight: 100 kg

DRUGS (1)
  1. TARKA [Suspect]
     Indication: SUICIDE ATTEMPT
     Dosage: 4-5 TABS ONCE
     Route: 048
     Dates: start: 20050722, end: 20050722

REACTIONS (2)
  - COMA [None]
  - SUICIDE ATTEMPT [None]
